FAERS Safety Report 8804886 (Version 1)
Quarter: 2012Q4

REPORT INFORMATION
  Report Type: 
  Country: US (occurrence: US)
  Receive Date: 20120924
  Receipt Date: 20120924
  Transmission Date: 20130627
  Serious: No
  Sender: FDA-Public Use
  Company Number: US-ALLERGAN-1210529US

PATIENT
  Age: 40 Year
  Sex: Female

DRUGS (2)
  1. AZELEX [Suspect]
     Indication: DRUG USE FOR UNKNOWN INDICATION
     Route: 061
  2. CLINDAMYCIN GEL [Concomitant]
     Indication: DRUG USE FOR UNKNOWN INDICATION
     Dosage: once or twice a week
     Route: 061

REACTIONS (3)
  - Acne [Recovering/Resolving]
  - Scab [Recovering/Resolving]
  - Burning sensation [Recovered/Resolved]
